FAERS Safety Report 16927536 (Version 6)
Quarter: 2020Q3

REPORT INFORMATION
  Report Type: Report from Study
  Country: US (occurrence: US)
  Receive Date: 20191016
  Receipt Date: 20200924
  Transmission Date: 20201102
  Serious: Yes (Hospitalization, Other)
  Sender: FDA-Public Use
  Company Number: NVSC2019US002587

PATIENT
  Sex: Female
  Weight: 97.05 kg

DRUGS (5)
  1. TREPROSTINIL. [Suspect]
     Active Substance: TREPROSTINIL
     Dosage: 50 (NG/KG/MIN) CONTINUOUS
     Route: 042
     Dates: start: 20190812
  2. TREPROSTINIL. [Suspect]
     Active Substance: TREPROSTINIL
     Indication: PULMONARY ARTERIAL HYPERTENSION
     Dosage: 50 OT (NG/KG/MIN), CONTINUOUS
     Route: 042
     Dates: start: 20190812
  3. TREPROSTINIL. [Suspect]
     Active Substance: TREPROSTINIL
     Dosage: 50 (NG/KG/MIN) CONTINUOUS
     Route: 042
     Dates: start: 20191208
  4. SILDENAFIL CITRATE. [Concomitant]
     Active Substance: SILDENAFIL CITRATE
     Indication: PRODUCT USED FOR UNKNOWN INDICATION
     Dosage: UNK
     Route: 065
  5. OPSUMIT [Concomitant]
     Active Substance: MACITENTAN
     Indication: PRODUCT USED FOR UNKNOWN INDICATION
     Dosage: UNK
     Route: 065

REACTIONS (4)
  - Lymphadenopathy [Unknown]
  - Dehydration [Unknown]
  - Rectal cancer stage III [Unknown]
  - Dizziness [Unknown]
